FAERS Safety Report 8504951-8 (Version None)
Quarter: 2012Q3

REPORT INFORMATION
  Report Type: 
  Country: None (occurrence: None)
  Receive Date: 20120712
  Receipt Date: 20120711
  Transmission Date: 20120928
  Serious: Yes (Other)
  Sender: FDA-Public Use
  Company Number: PHHY2012IT049650

PATIENT
  Sex: Male

DRUGS (1)
  1. ZOMETA [Suspect]
     Indication: METASTASES TO BONE
     Dosage: 04 MG/ 05 ML (ONE POSOLOGIC UNIT)
     Route: 042
     Dates: start: 20100501, end: 20120201

REACTIONS (1)
  - OSTEONECROSIS OF JAW [None]
